FAERS Safety Report 21078711 (Version 1)
Quarter: 2022Q3

REPORT INFORMATION
  Report Type: Spontaneous
  Country: US (occurrence: US)
  Receive Date: 20220713
  Receipt Date: 20220713
  Transmission Date: 20221027
  Serious: No
  Sender: FDA-Public Use
  Company Number: US-SANOFI-01178124

PATIENT
  Sex: Female

DRUGS (3)
  1. ELITEK [Suspect]
     Active Substance: RASBURICASE
     Indication: Acute myocardial infarction
     Dosage: UNK
     Dates: start: 20220601
  2. ELITEK [Suspect]
     Active Substance: RASBURICASE
     Indication: Hypertensive heart disease
  3. ELITEK [Suspect]
     Active Substance: RASBURICASE
     Indication: Chronic kidney disease

REACTIONS (2)
  - Product prescribing issue [Unknown]
  - Product use in unapproved indication [Unknown]
